FAERS Safety Report 8853913 (Version 2)
Quarter: 2012Q4

REPORT INFORMATION
  Report Type: 
  Country: JP (occurrence: JP)
  Receive Date: 20121022
  Receipt Date: 20121120
  Transmission Date: 20130627
  Serious: Yes (Other)
  Sender: FDA-Public Use
  Company Number: PHHY2012JP093717

PATIENT

DRUGS (2)
  1. LAMISIL [Suspect]
     Route: 048
  2. CLARITH [Concomitant]
     Route: 048

REACTIONS (1)
  - Infection [Unknown]
